FAERS Safety Report 15750970 (Version 1)
Quarter: 2018Q4

REPORT INFORMATION
  Report Type: Spontaneous
  Country: US (occurrence: US)
  Receive Date: 20181206
  Receipt Date: 20181206
  Transmission Date: 20190205
  Serious: Yes (Hospitalization)
  Sender: FDA-Public Use
  Company Number: None

PATIENT
  Sex: Male

DRUGS (9)
  1. TOBRAMYCIN. [Suspect]
     Active Substance: TOBRAMYCIN
     Indication: CYSTIC FIBROSIS
     Route: 055
     Dates: start: 20151030
  2. SALINE SOLUTION [Concomitant]
     Active Substance: SODIUM CHLORIDE
  3. AQUADEKS [Concomitant]
     Active Substance: MINERALS\VITAMINS
  4. PULMOZYME [Suspect]
     Active Substance: DORNASE ALFA
     Indication: CYSTIC FIBROSIS
     Route: 055
     Dates: start: 20150812
  5. ALBUTEROL. [Concomitant]
     Active Substance: ALBUTEROL
  6. SOURCECF CHEWABLES [Concomitant]
  7. MIRALAX [Concomitant]
     Active Substance: POLYETHYLENE GLYCOL 3350
  8. PREVACID [Concomitant]
     Active Substance: LANSOPRAZOLE
  9. ZENPEP [Concomitant]
     Active Substance: PANCRELIPASE AMYLASE\PANCRELIPASE LIPASE\PANCRELIPASE PROTEASE

REACTIONS (2)
  - Condition aggravated [None]
  - Cystic fibrosis [None]
